FAERS Safety Report 12695135 (Version 1)
Quarter: 2016Q3

REPORT INFORMATION
  Report Type: Spontaneous
  Country: SA (occurrence: SA)
  Receive Date: 20160829
  Receipt Date: 20160829
  Transmission Date: 20161109
  Serious: Yes (Other)
  Sender: FDA-Public Use
  Company Number: SA-MYLANLABS-2016M1036386

PATIENT

DRUGS (22)
  1. AMINOSALICYLIC ACID [Concomitant]
     Active Substance: AMINOSALICYLIC ACID
     Indication: BONE TUBERCULOSIS
     Dosage: FOR 4, 2 AND 18 MONTHS
     Route: 065
  2. CLARITHROMYCIN. [Suspect]
     Active Substance: CLARITHROMYCIN
     Indication: TUBERCULOSIS
     Route: 065
  3. AZITHROMYCIN ANHYDROUS. [Concomitant]
     Active Substance: AZITHROMYCIN ANHYDROUS
     Indication: BONE TUBERCULOSIS
     Route: 065
  4. CLARITHROMYCIN. [Suspect]
     Active Substance: CLARITHROMYCIN
     Indication: BONE TUBERCULOSIS
     Route: 065
  5. LINEZOLID. [Suspect]
     Active Substance: LINEZOLID
     Indication: TUBERCULOSIS
     Route: 065
  6. CYCLOSERINE. [Concomitant]
     Active Substance: CYCLOSERINE
     Indication: TUBERCULOSIS
     Dosage: FOR 4, 2 AND 18 MONTHS
     Route: 065
  7. CAPREOMYCIN [Concomitant]
     Active Substance: CAPREOMYCIN
     Indication: TUBERCULOSIS
     Dosage: DAILY
     Route: 065
  8. AMIKACIN [Concomitant]
     Active Substance: AMIKACIN
     Indication: BONE TUBERCULOSIS
     Dosage: EVERY OTHER DAY
     Route: 065
  9. CYCLOSERINE. [Concomitant]
     Active Substance: CYCLOSERINE
     Indication: BONE TUBERCULOSIS
     Dosage: FOR 4, 2 AND 18 MONTHS
     Route: 065
  10. CAPREOMYCIN [Concomitant]
     Active Substance: CAPREOMYCIN
     Indication: BONE TUBERCULOSIS
     Dosage: DAILY
     Route: 065
  11. MOXIFLOXACIN. [Concomitant]
     Active Substance: MOXIFLOXACIN
     Indication: BONE TUBERCULOSIS
     Dosage: FOR 4, 2 AND 18 MONTHS
     Route: 065
  12. AMPICILLIN TRIHYDRATE W/CLAVULANATE POTASSIUM [Suspect]
     Active Substance: AMPICILLIN TRIHYDRATE\CLAVULANATE POTASSIUM
     Indication: BONE TUBERCULOSIS
     Route: 065
  13. AMPICILLIN TRIHYDRATE W/CLAVULANATE POTASSIUM [Suspect]
     Active Substance: AMPICILLIN TRIHYDRATE\CLAVULANATE POTASSIUM
     Indication: TUBERCULOSIS
     Route: 065
  14. AMINOSALICYLIC ACID [Concomitant]
     Active Substance: AMINOSALICYLIC ACID
     Indication: TUBERCULOSIS
     Dosage: FOR 4, 2 AND 18 MONTHS
     Route: 065
  15. LINEZOLID. [Suspect]
     Active Substance: LINEZOLID
     Indication: BONE TUBERCULOSIS
     Route: 065
  16. CLOFAZIMINE [Concomitant]
     Active Substance: CLOFAZIMINE
     Indication: TUBERCULOSIS
     Dosage: FOR 4, 2 AND 18 MONTHS
     Route: 065
  17. AMIKACIN [Concomitant]
     Active Substance: AMIKACIN
     Indication: TUBERCULOSIS
     Dosage: EVERY OTHER DAY
     Route: 065
  18. AZITHROMYCIN ANHYDROUS. [Concomitant]
     Active Substance: AZITHROMYCIN ANHYDROUS
     Indication: TUBERCULOSIS
     Route: 065
  19. MEROPENEM. [Suspect]
     Active Substance: MEROPENEM
     Indication: BONE TUBERCULOSIS
     Route: 065
  20. MEROPENEM. [Suspect]
     Active Substance: MEROPENEM
     Indication: TUBERCULOSIS
     Route: 065
  21. CLOFAZIMINE [Concomitant]
     Active Substance: CLOFAZIMINE
     Indication: BONE TUBERCULOSIS
     Dosage: FOR 4, 2 AND 18 MONTHS
     Route: 065
  22. MOXIFLOXACIN. [Concomitant]
     Active Substance: MOXIFLOXACIN
     Indication: TUBERCULOSIS
     Dosage: FOR 4, 2 AND 18 MONTHS
     Route: 065

REACTIONS (2)
  - Axonal neuropathy [Unknown]
  - Abdominal discomfort [Unknown]
